FAERS Safety Report 4374118-6 (Version None)
Quarter: 2004Q2

REPORT INFORMATION
  Report Type: 
  Country: None (occurrence: None)
  Receive Date: 20040607
  Receipt Date: 20040517
  Transmission Date: 20050107
  Serious: Yes (Death, Hospitalization)
  Sender: FDA-Public Use
  Company Number: FR-MERCK-0405FRA00064

PATIENT
  Age: 83 Year
  Sex: Male

DRUGS (6)
  1. ACETAMINOPHEN AND PROPOXYPHENE HYDROCHLORIDE [Concomitant]
     Route: 048
  2. ALPRAZOLAM [Concomitant]
     Indication: ANXIETY
     Route: 048
  3. ENOXAPARIN SODIUM [Concomitant]
     Indication: THROMBOSIS PROPHYLAXIS
     Route: 058
  4. NOROXIN [Suspect]
     Indication: URINARY TRACT INFECTION
     Route: 048
     Dates: start: 20040506, end: 20040510
  5. TRIMETAZIDINE HYDROCHLORIDE [Concomitant]
     Route: 048
  6. ZOPICLONE [Concomitant]
     Indication: INSOMNIA
     Route: 048

REACTIONS (2)
  - COLONIC OBSTRUCTION [None]
  - HYPERTHERMIA [None]
